FAERS Safety Report 25373044 (Version 2)
Quarter: 2025Q2

REPORT INFORMATION
  Report Type: Spontaneous
  Country: TH (occurrence: TH)
  Receive Date: 20250529
  Receipt Date: 20250604
  Transmission Date: 20250716
  Serious: Yes (Hospitalization)
  Sender: TEVA
  Company Number: TH-TEVA-VS-3334074

PATIENT
  Age: 50 Year
  Sex: Female

DRUGS (6)
  1. CARBOPLATIN [Suspect]
     Active Substance: CARBOPLATIN
     Indication: Lung adenocarcinoma
     Route: 065
  2. GEMCITABINE [Suspect]
     Active Substance: GEMCITABINE
     Indication: Lung adenocarcinoma
     Route: 065
  3. AMPHOTERICIN B [Suspect]
     Active Substance: AMPHOTERICIN B
     Indication: Evidence based treatment
     Route: 050
     Dates: start: 20230823
  4. AMPHOTERICIN B [Suspect]
     Active Substance: AMPHOTERICIN B
     Indication: Evidence based treatment
     Route: 042
     Dates: start: 2023
  5. VANCOMYCIN [Concomitant]
     Active Substance: VANCOMYCIN
     Indication: Evidence based treatment
     Route: 050
     Dates: start: 20230823
  6. CEFTAZIDIME [Concomitant]
     Active Substance: CEFTAZIDIME
     Indication: Evidence based treatment
     Route: 050
     Dates: start: 20230823

REACTIONS (3)
  - Nephropathy toxic [Unknown]
  - Endophthalmitis [Recovering/Resolving]
  - Cryptococcosis [Recovering/Resolving]

NARRATIVE: CASE EVENT DATE: 20230101
